FAERS Safety Report 5829756-8 (Version None)
Quarter: 2008Q3

REPORT INFORMATION
  Report Type: 
  Country: None (occurrence: None)
  Receive Date: 20080801
  Receipt Date: 20080422
  Transmission Date: 20090109
  Serious: No
  Sender: FDA-Public Use
  Company Number: US-BAYER-200811909BCC

PATIENT
  Sex: Male

DRUGS (2)
  1. ALEVE (CAPLET) [Suspect]
     Indication: PAIN
     Route: 048
     Dates: start: 20071001, end: 20080421
  2. PROBIOTICS [Concomitant]

REACTIONS (2)
  - CONSTIPATION [None]
  - STOMACH DISCOMFORT [None]
